FAERS Safety Report 9804190 (Version 2)
Quarter: 2014Q1

REPORT INFORMATION
  Report Type: Spontaneous
  Country: GB (occurrence: GB)
  Receive Date: 20140108
  Receipt Date: 20140122
  Transmission Date: 20141002
  Serious: Yes (Other)
  Sender: FDA-Public Use
  Company Number: GB-WATSON-2013-24177

PATIENT
  Sex: Female

DRUGS (15)
  1. CYCLOPHOSPHAMIDE (UNKNOWN) [Suspect]
     Indication: NON-HODGKIN^S LYMPHOMA
     Dosage: UNK; TOTAL OF 3 CYCLES
     Route: 042
     Dates: start: 20130610
  2. CYCLOPHOSPHAMIDE (UNKNOWN) [Suspect]
     Dosage: UNK
     Route: 042
     Dates: start: 20130701
  3. CYCLOPHOSPHAMIDE (UNKNOWN) [Suspect]
     Dosage: UNK
     Route: 042
     Dates: start: 20130722
  4. DOXORUBICIN (UNKNOWN) [Suspect]
     Indication: NON-HODGKIN^S LYMPHOMA
     Dosage: UNK; TOTAL OF 3 CYCLES
     Route: 042
     Dates: start: 20130610
  5. DOXORUBICIN (UNKNOWN) [Suspect]
     Dosage: UNK
     Route: 042
     Dates: start: 20130701
  6. DOXORUBICIN (UNKNOWN) [Suspect]
     Dosage: UNK
     Route: 042
     Dates: start: 20130722
  7. VINCRISTINE (UNKNOWN) [Suspect]
     Indication: NON-HODGKIN^S LYMPHOMA
     Dosage: UNK; TOTAL OF 3 CYCLES
     Route: 042
     Dates: start: 20130310
  8. VINCRISTINE (UNKNOWN) [Suspect]
     Dosage: UNK
     Route: 042
     Dates: start: 20130701
  9. VINCRISTINE (UNKNOWN) [Suspect]
     Dosage: UNK
     Route: 042
     Dates: start: 20130722
  10. PREDNISOLONE (UNKNOWN) [Suspect]
     Indication: NON-HODGKIN^S LYMPHOMA
     Dosage: UNK; TOTAL OF 3 CYCLES
     Route: 048
     Dates: start: 20130610
  11. PREDNISOLONE (UNKNOWN) [Suspect]
     Dosage: UNK
     Route: 048
     Dates: start: 20130701
  12. PREDNISOLONE (UNKNOWN) [Suspect]
     Dosage: UNK
     Route: 048
     Dates: start: 20130722
  13. RITUXIMAB [Suspect]
     Indication: NON-HODGKIN^S LYMPHOMA
     Dosage: UNK; TOTAL OF 3 CYCLES
     Route: 042
     Dates: start: 20130610
  14. RITUXIMAB [Suspect]
     Dosage: UNK
     Route: 042
     Dates: start: 20130701
  15. RITUXIMAB [Suspect]
     Dosage: UNK
     Route: 042
     Dates: start: 20130722

REACTIONS (1)
  - Progressive multifocal leukoencephalopathy [Unknown]
